FAERS Safety Report 16314108 (Version 1)
Quarter: 2019Q2

REPORT INFORMATION
  Report Type: Spontaneous
  Country: US (occurrence: US)
  Receive Date: 20190514
  Receipt Date: 20190514
  Transmission Date: 20190711
  Serious: Yes (Other)
  Sender: FDA-Public Use
  Company Number: None

PATIENT
  Sex: Male

DRUGS (14)
  1. ATORVASTATIN 10MG TABLETS [Concomitant]
     Active Substance: ATORVASTATIN
     Dates: start: 20190326
  2. HYDROCODONE/APAP 7.5MG/325MG [Concomitant]
     Dates: start: 20190510
  3. ONDANSETRON 4MG TABLETS [Concomitant]
     Dates: start: 20181120
  4. PANTOPRAZOLE 40MG TABLETS [Concomitant]
     Active Substance: PANTOPRAZOLE
     Dates: start: 20190223
  5. FOLIC ACID 1000 MCG TABLETS [Concomitant]
     Dates: start: 20190222
  6. ENBREL [Suspect]
     Active Substance: ETANERCEPT
     Indication: RHEUMATOID ARTHRITIS
     Dosage: ?          OTHER FREQUENCY:ONCE A WEEK;?
     Route: 058
  7. PREDNISONE 5MG TABLETS [Concomitant]
     Active Substance: PREDNISONE
     Dates: start: 20190410
  8. GABAPENTIN 100 MG CAPSULES [Concomitant]
     Active Substance: GABAPENTIN
     Dates: start: 20181120
  9. HYDROXYCHLOROQUINE 200MG TABLETS [Concomitant]
     Active Substance: HYDROXYCHLOROQUINE
     Dates: start: 20190108
  10. ALLOPURINOL 100MG TABLETS [Concomitant]
     Dates: start: 20190318
  11. LEVOCETIRIZINE 5MG TABLETS [Concomitant]
     Dates: start: 20181120
  12. MONTELUKAST 10MG TABLETS [Concomitant]
     Active Substance: MONTELUKAST\MONTELUKAST SODIUM
     Dates: start: 20181120
  13. PROMETHAZINE [Concomitant]
     Active Substance: PROMETHAZINE\PROMETHAZINE HYDROCHLORIDE
     Dates: start: 20190510
  14. SULFASALAZINE 500MG TABLETS [Concomitant]
     Dates: start: 20190410

REACTIONS (1)
  - Knee operation [None]
